FAERS Safety Report 13060284 (Version 2)
Quarter: 2017Q4

REPORT INFORMATION
  Report Type: Spontaneous
  Country: MX (occurrence: MX)
  Receive Date: 20161223
  Receipt Date: 20171107
  Transmission Date: 20180320
  Serious: Yes (Other)
  Sender: FDA-Public Use
  Company Number: MX-BAUSCH-BL-2016-032048

PATIENT
  Age: 59 Year
  Sex: Male

DRUGS (11)
  1. AZIDOTHYMIDINE [Concomitant]
     Active Substance: ZIDOVUDINE
     Indication: KAPOSI^S SARCOMA
     Dates: start: 199412
  2. GANCICLOVIR. [Suspect]
     Active Substance: GANCICLOVIR
     Indication: CYTOMEGALOVIRUS CHORIORETINITIS
     Route: 065
     Dates: start: 199703
  3. VANCOMYCIN [Concomitant]
     Active Substance: VANCOMYCIN
     Indication: PRODUCT USED FOR UNKNOWN INDICATION
     Dates: start: 199810
  4. GANCICLOVIR. [Suspect]
     Active Substance: GANCICLOVIR
     Route: 065
     Dates: start: 199906
  5. GANCICLOVIR. [Suspect]
     Active Substance: GANCICLOVIR
     Indication: CYTOMEGALOVIRUS COLITIS
     Route: 065
     Dates: start: 199609
  6. INDINAVIR [Concomitant]
     Active Substance: INDINAVIR
     Indication: PRODUCT USED FOR UNKNOWN INDICATION
     Dates: start: 199610
  7. SAQUINAVIR [Concomitant]
     Active Substance: SAQUINAVIR
     Indication: PRODUCT USED FOR UNKNOWN INDICATION
     Dates: start: 199811
  8. GANCICLOVIR. [Suspect]
     Active Substance: GANCICLOVIR
     Dosage: PROPHYLACTIC DOSE
     Route: 058
     Dates: start: 199708
  9. DIDANOSINE. [Concomitant]
     Active Substance: DIDANOSINE
     Indication: KAPOSI^S SARCOMA
     Dates: start: 199504
  10. DOXYCYCLINE. [Concomitant]
     Active Substance: DOXYCYCLINE
     Indication: SYPHILIS
  11. LAMIVUDINE/AZIDOTHYMIDINE [Concomitant]
     Indication: PRODUCT USED FOR UNKNOWN INDICATION
     Dates: start: 199604

REACTIONS (4)
  - Lymphoedema [Unknown]
  - Pain [Unknown]
  - Drug ineffective [Unknown]
  - Condition aggravated [Unknown]
